FAERS Safety Report 4650461-8 (Version None)
Quarter: 2005Q2

REPORT INFORMATION
  Report Type: 
  Country: None (occurrence: None)
  Receive Date: 20050429
  Receipt Date: 20050415
  Transmission Date: 20051028
  Serious: Yes (Death)
  Sender: FDA-Public Use
  Company Number: 214078

PATIENT
  Age: 51 Year
  Sex: Female

DRUGS (5)
  1. HERCEPTIN [Suspect]
     Indication: BREAST CANCER
     Dosage: 1/WEEK, INTRAVENOUS
     Route: 042
     Dates: start: 20041207, end: 20050214
  2. PACLITAXEL [Suspect]
     Indication: BREAST CANCER
     Dosage: 1/WEEK, INTRAVENOUS
     Route: 042
     Dates: start: 20041207, end: 20050214
  3. ZOMETA [Concomitant]
  4. RANITIDINE [Concomitant]
  5. DIPHENHYDRAMINE HCL [Concomitant]

REACTIONS (1)
  - ANAPHYLACTIC REACTION [None]
